FAERS Safety Report 10045312 (Version 1)
Quarter: 2014Q1

REPORT INFORMATION
  Report Type: Spontaneous
  Country: US (occurrence: None)
  Receive Date: 20140306
  Receipt Date: 20140306
  Transmission Date: 20141002
  Serious: Yes (Hospitalization, Other)
  Sender: FDA-Public Use
  Company Number: 163-21880-13044785

PATIENT
  Age: 77 Year
  Sex: Female

DRUGS (15)
  1. REVLIMID (LENALIDOMIDE) (25 MILLIGRAM, CAPSULES) [Suspect]
     Indication: PLASMA CELL MYELOMA
     Route: 048
     Dates: start: 20130328, end: 20130415
  2. ASPIRIN (ACETYLSALICYLIC ACID) [Concomitant]
  3. DILTIAZEM ER (DILTIAZEM HYDROCHLORIDE) [Concomitant]
  4. FUROSEMIDE (FUROSEMIDE) [Concomitant]
  5. GABAPENTIN (GABAPENTIN) [Concomitant]
  6. LIPITOR (ATORVASTATIN) [Concomitant]
  7. LOSARTAN (LOSARTAN) [Concomitant]
  8. NEXIUM (ESOMEPRAZOLE) [Concomitant]
  9. TOPAMAX (TOPIRAMATE) [Concomitant]
  10. VENLAFAXINE (VENLAFAXINE) [Concomitant]
  11. DEXAMETHASONE (DEXAMETHASONE) [Concomitant]
  12. ZOMETA (ZOLEDRONIC ACID) [Concomitant]
  13. VELCADE (BORTEZOMIB) [Concomitant]
  14. DURAGESIC (FENTANYL) [Concomitant]
  15. DILAUDID (HYDROMORPHONE HYDROCHLORIDE) [Concomitant]

REACTIONS (7)
  - Tumour lysis syndrome [None]
  - Renal failure acute [None]
  - Dehydration [None]
  - Cystitis escherichia [None]
  - Angina pectoris [None]
  - Plasma cell myeloma [None]
  - Anaemia [None]
